FAERS Safety Report 5524807-2 (Version None)
Quarter: 2007Q4

REPORT INFORMATION
  Report Type: 
  Country: None (occurrence: None)
  Receive Date: 20071116
  Receipt Date: 20071102
  Transmission Date: 20080405
  Serious: Yes (Hospitalization)
  Sender: FDA-Public Use
  Company Number: 100#08#2007-04551

PATIENT
  Age: 55 Year
  Sex: Male

DRUGS (1)
  1. CARBAMAZEPINE [Suspect]
     Indication: PARTIAL SEIZURES
     Dosage: 600 MG REDUCED TO UNKNOWN DOSAGE (DAILY)

REACTIONS (3)
  - APHASIA [None]
  - STATUS EPILEPTICUS [None]
  - WITHDRAWAL SYNDROME [None]
